FAERS Safety Report 9586077 (Version 1)
Quarter: 2013Q4

REPORT INFORMATION
  Report Type: Report from Study
  Country: NL (occurrence: NL)
  Receive Date: 20131003
  Receipt Date: 20131003
  Transmission Date: 20140711
  Serious: Yes (Hospitalization)
  Sender: FDA-Public Use
  Company Number: NL-ROCHE-1282316

PATIENT
  Age: 46 Year
  Sex: Female
  Weight: 98 kg

DRUGS (12)
  1. MIRCERA [Suspect]
     Indication: NEPHROTIC SYNDROME
     Route: 058
     Dates: start: 20130816
  2. ENDOXAN [Concomitant]
     Route: 048
     Dates: start: 20130620
  3. APROVEL [Concomitant]
     Route: 048
     Dates: start: 20130620
  4. BUMETANIDE [Concomitant]
     Indication: DIURETIC THERAPY
     Route: 048
     Dates: start: 201204
  5. LISINOPRIL [Concomitant]
     Indication: HYPERTENSION
     Route: 048
     Dates: start: 201204, end: 201308
  6. PANTOPRAZOLE [Concomitant]
     Indication: PROPHYLAXIS AGAINST GASTROINTESTINAL ULCER
     Route: 048
     Dates: start: 201204
  7. METOCLOPRAMIDE [Concomitant]
     Indication: NAUSEA
     Route: 048
     Dates: start: 20130620
  8. FERROFUMARAT [Concomitant]
     Indication: HAEMOGLOBIN DECREASED
     Route: 048
     Dates: start: 201304
  9. IMPORTAL [Concomitant]
     Indication: LAXATIVE SUPPORTIVE CARE
     Route: 048
     Dates: start: 201304
  10. PREDNISONE [Concomitant]
     Route: 042
     Dates: start: 20130618
  11. PREDNISOLONE [Concomitant]
     Route: 048
     Dates: start: 20130620
  12. SIMVASTATIN [Concomitant]
     Indication: BLOOD CHOLESTEROL INCREASED
     Route: 048
     Dates: start: 201204

REACTIONS (1)
  - Pyrexia [Recovered/Resolved]
